FAERS Safety Report 8909097 (Version 6)
Quarter: 2019Q4

REPORT INFORMATION
  Report Type: Spontaneous
  Country: GB (occurrence: GB)
  Receive Date: 20121114
  Receipt Date: 20191227
  Transmission Date: 20200122
  Serious: Yes (Life-Threatening, Hospitalization, Other)
  Sender: FDA-Public Use
  Company Number: GB-PFIZER INC-2012284129

PATIENT
  Age: 72 Year

DRUGS (10)
  1. CO-AMOXICLAV [Suspect]
     Active Substance: AMOXICILLIN\CLAVULANATE POTASSIUM
     Indication: SEPSIS
     Dosage: 1.2 G, 3X/DAY
     Route: 041
     Dates: start: 20110328, end: 20110403
  2. FLUCLOXACILLIN [Suspect]
     Active Substance: FLUCLOXACILLIN
     Dosage: 500 MG, 4X/DAY
     Route: 048
     Dates: start: 20100908
  3. METRONIDAZOLE. [Suspect]
     Active Substance: METRONIDAZOLE
     Dosage: 500 MG, 3X/DAY (100MG / 20ML SOLUTION FOR INFUSION)
     Route: 041
     Dates: start: 20110308, end: 20110308
  4. CEFTRIAXONE. [Suspect]
     Active Substance: CEFTRIAXONE
     Indication: PANCREATITIS
     Dosage: 1 G, 1X/DAY
     Route: 041
     Dates: start: 20110308, end: 20110803
  5. CEFUROXIME. [Suspect]
     Active Substance: CEFUROXIME
     Dosage: 1.5 G, SINGLE
     Route: 041
     Dates: start: 20110308, end: 20110803
  6. TRIMETHOPRIM. [Suspect]
     Active Substance: TRIMETHOPRIM
     Indication: URINARY TRACT INFECTION
     Dosage: 200 MG, 2X/DAY
     Route: 048
     Dates: start: 20110305, end: 20110305
  7. MEROPENEM. [Suspect]
     Active Substance: MEROPENEM
     Indication: PANCREATITIS NECROTISING
     Dosage: 1 G, 3X/DAY
     Route: 041
     Dates: start: 20110309, end: 20110313
  8. TAZOBACTAM [Suspect]
     Active Substance: TAZOBACTAM
     Dosage: UNK
  9. PIPERACILLIN/TAZOBACTAM [Suspect]
     Active Substance: PIPERACILLIN SODIUM\TAZOBACTAM SODIUM
     Indication: PNEUMONIA
     Dosage: 4.5 G, 3X/DAY
     Route: 041
     Dates: start: 20110420, end: 20110425
  10. ERYTHROMYCIN. [Suspect]
     Active Substance: ERYTHROMYCIN
     Dosage: 125 MG, 3X/DAY
     Route: 048
     Dates: start: 20110319, end: 20110325

REACTIONS (1)
  - Clostridium test positive [Recovered/Resolved]

NARRATIVE: CASE EVENT DATE: 20110421
